FAERS Safety Report 15280901 (Version 1)
Quarter: 2018Q3

REPORT INFORMATION
  Report Type: Spontaneous
  Country: US (occurrence: US)
  Receive Date: 20180731
  Receipt Date: 20180731
  Transmission Date: 20181010
  Serious: No
  Sender: FDA-Public Use
  Company Number: None

PATIENT
  Sex: Female

DRUGS (7)
  1. OB COMPLETE [Concomitant]
  2. ASPIRIN. [Concomitant]
     Active Substance: ASPIRIN
  3. LEUPROLIDE [Concomitant]
     Active Substance: LEUPROLIDE
  4. MINIVELLE [Concomitant]
     Active Substance: ESTRADIOL
  5. GONAL?F [Concomitant]
     Active Substance: FOLLITROPIN
  6. GANIRELIX [Suspect]
     Active Substance: GANIRELIX
     Route: 058
     Dates: start: 20180421
  7. PROGESTERONE. [Concomitant]
     Active Substance: PROGESTERONE

REACTIONS (1)
  - Application site rash [None]
